FAERS Safety Report 4476643-6 (Version None)
Quarter: 2004Q4

REPORT INFORMATION
  Report Type: 
  Country: None (occurrence: None)
  Receive Date: 20041013
  Receipt Date: 20040927
  Transmission Date: 20050328
  Serious: Yes (Hospitalization)
  Sender: FDA-Public Use
  Company Number: USA040979406

PATIENT
  Age: 39 Year
  Sex: Female
  Weight: 91 kg

DRUGS (2)
  1. STRATTERA [Suspect]
     Indication: ATTENTION DEFICIT/HYPERACTIVITY DISORDER
     Dosage: 100 MG DAY
     Dates: start: 20030701, end: 20040822
  2. LEXAPRO [Concomitant]

REACTIONS (5)
  - BRONCHITIS [None]
  - CHEST PAIN [None]
  - HYPOMANIA [None]
  - POST-TRAUMATIC STRESS DISORDER [None]
  - PSYCHOTIC DISORDER [None]
